FAERS Safety Report 6470520-7 (Version None)
Quarter: 2009Q4

REPORT INFORMATION
  Report Type: 
  Country: None (occurrence: None)
  Receive Date: 20091202
  Receipt Date: 20091202
  Transmission Date: 20100525
  Serious: No
  Sender: FDA-Public Use
  Company Number: None

PATIENT
  Sex: Male
  Weight: 83.9154 kg

DRUGS (1)
  1. LUCENTIS [Suspect]
     Indication: MACULAR DEGENERATION
     Dosage: 2ND DOSE INTRAOCULAR
     Route: 031
     Dates: start: 20090201, end: 20090630

REACTIONS (4)
  - BLINDNESS UNILATERAL [None]
  - FEELING ABNORMAL [None]
  - INJECTION SITE REACTION [None]
  - VISUAL FIELD DEFECT [None]
